FAERS Safety Report 18649371 (Version 1)
Quarter: 2020Q4

REPORT INFORMATION
  Report Type: Spontaneous
  Country: US (occurrence: US)
  Receive Date: 20201222
  Receipt Date: 20201222
  Transmission Date: 20210114
  Serious: No
  Sender: FDA-Public Use
  Company Number: None

PATIENT
  Age: 71 Year
  Sex: Female
  Weight: 58.06 kg

DRUGS (5)
  1. MULTIVITAMIN, ORAL [Concomitant]
  2. ELIQUIS 5 MG, ORAL [Concomitant]
  3. METFORMIN 500 MG, ORAL [Concomitant]
  4. IBRANCE [Suspect]
     Active Substance: PALBOCICLIB
     Indication: BREAST CANCER FEMALE
     Route: 048
     Dates: start: 20201125
  5. FEMARA 2.5 MG, ORAL [Concomitant]

REACTIONS (1)
  - Tinnitus [None]

NARRATIVE: CASE EVENT DATE: 20201222
